FAERS Safety Report 9994985 (Version 1)
Quarter: 2014Q1

REPORT INFORMATION
  Report Type: Spontaneous
  Country: US (occurrence: None)
  Receive Date: 20140306
  Receipt Date: 20140306
  Transmission Date: 20141002
  Serious: Yes (Hospitalization)
  Sender: FDA-Public Use
  Company Number: BTG00111

PATIENT
  Sex: 0

DRUGS (2)
  1. DIGIFAB [Suspect]
     Indication: TOXICITY TO VARIOUS AGENTS
     Dates: start: 201402
  2. DIGOXIN [Concomitant]

REACTIONS (2)
  - Blood potassium increased [None]
  - Drug ineffective [None]
